FAERS Safety Report 8895576 (Version 2)
Quarter: 2012Q4

REPORT INFORMATION
  Report Type: 
  Country: JP (occurrence: TW)
  Receive Date: 20121107
  Receipt Date: 20121113
  Transmission Date: 20130627
  Serious: Yes (Other)
  Sender: FDA-Public Use
  Company Number: TW-009507513-1210TWN014274

PATIENT
  Age: 60 Year
  Sex: Male

DRUGS (8)
  1. FAMOTIDINE [Suspect]
     Indication: PEPTIC ULCER
     Dosage: 20 mg, bid
     Route: 048
     Dates: start: 20100317, end: 20100703
  2. ASPIRIN [Concomitant]
  3. LABETALOL HYDROCHLORIDE [Concomitant]
  4. NIFEDIPINE [Concomitant]
  5. TERAZOSIN HYDROCHLORIDE [Concomitant]
  6. METFORMIN [Concomitant]
  7. GLIMEPIRIDE [Concomitant]
  8. ACARBOSE [Concomitant]

REACTIONS (3)
  - Cerebral infarction [Recovered/Resolved]
  - Eosinophilia [Recovered/Resolved]
  - Heart injury [Recovered/Resolved]
